FAERS Safety Report 11685210 (Version 1)
Quarter: 2015Q4

REPORT INFORMATION
  Report Type: Spontaneous
  Country: NO (occurrence: NO)
  Receive Date: 20151030
  Receipt Date: 20151030
  Transmission Date: 20160304
  Serious: Yes (Death, Hospitalization)
  Sender: FDA-Public Use
  Company Number: NO-ACCORD-034820

PATIENT
  Age: 84 Year
  Sex: Male

DRUGS (1)
  1. METHOTREXATE [Suspect]
     Active Substance: METHOTREXATE
     Indication: PUSTULAR PSORIASIS
     Dosage: 12.5 MG, WEEKLY
     Dates: start: 20140516, end: 2014

REACTIONS (1)
  - Pemphigoid [Fatal]

NARRATIVE: CASE EVENT DATE: 201406
